FAERS Safety Report 18460735 (Version 1)
Quarter: 2020Q4

REPORT INFORMATION
  Report Type: Spontaneous
  Country: NL (occurrence: NL)
  Receive Date: 20201104
  Receipt Date: 20201104
  Transmission Date: 20210114
  Serious: Yes (Hospitalization, Other)
  Sender: FDA-Public Use
  Company Number: NL-AUROBINDO-AUR-APL-2012-05449

PATIENT
  Age: 49 Year
  Sex: Female

DRUGS (3)
  1. LEVETIRACETAM. [Concomitant]
     Active Substance: LEVETIRACETAM
     Indication: EPILEPSY
     Dosage: UNK UNK,UNK,
     Route: 065
  2. NITRAZEPAM [Concomitant]
     Active Substance: NITRAZEPAM
     Indication: BRONCHITIS
     Dosage: UNK UNK,UNK,
     Route: 065
  3. LISINOPRIL. [Suspect]
     Active Substance: LISINOPRIL
     Indication: HYPERTENSION
     Dosage: UNK
     Route: 065

REACTIONS (13)
  - Intestinal angioedema [Recovered/Resolved]
  - Intestinal ischaemia [Recovered/Resolved]
  - Blood lactate dehydrogenase increased [Unknown]
  - Abdominal pain [Recovered/Resolved]
  - Abdominal rebound tenderness [Recovered/Resolved]
  - Abdominal distension [Recovered/Resolved]
  - Angioedema [Recovered/Resolved]
  - Nausea [Recovered/Resolved]
  - Blood creatine phosphokinase increased [Unknown]
  - Ascites [Recovered/Resolved]
  - Gastrointestinal oedema [Recovered/Resolved]
  - Gamma-glutamyltransferase increased [Unknown]
  - Acute abdomen [Recovered/Resolved]
